FAERS Safety Report 7358324-4 (Version None)
Quarter: 2011Q1

REPORT INFORMATION
  Report Type: 
  Country: None (occurrence: None)
  Receive Date: 20110317
  Receipt Date: 20110304
  Transmission Date: 20110831
  Serious: Yes (Hospitalization)
  Sender: FDA-Public Use
  Company Number: PHHY2011JP09065

PATIENT
  Sex: Female

DRUGS (2)
  1. CRESTOR [Concomitant]
     Dosage: UNK
  2. DIOVAN [Suspect]
     Indication: HYPERTENSION
     Dosage: 40 MG, QD
     Route: 048
     Dates: start: 20060617

REACTIONS (2)
  - THYROID CANCER [None]
  - DYSPHAGIA [None]
